FAERS Safety Report 8716321 (Version 2)
Quarter: 2013Q4

REPORT INFORMATION
  Report Type: Spontaneous
  Country: DE (occurrence: DE)
  Receive Date: 20120810
  Receipt Date: 20131031
  Transmission Date: 20140711
  Serious: Yes (Other)
  Sender: FDA-Public Use
  Company Number: DE-MERCK-1208DEU002445

PATIENT
  Age: 44 Year
  Sex: Female

DRUGS (1)
  1. AERIUS [Suspect]
     Route: 048

REACTIONS (2)
  - Anaphylactic shock [Unknown]
  - Hypersensitivity [Unknown]
